FAERS Safety Report 23427016 (Version 4)
Quarter: 2024Q4

REPORT INFORMATION
  Report Type: Report from Study
  Country: CA (occurrence: CA)
  Receive Date: 20240122
  Receipt Date: 20241109
  Transmission Date: 20250115
  Serious: Yes (Hospitalization, Other)
  Sender: ROCHE
  Company Number: CA-ROCHE-3491220

PATIENT
  Sex: Female

DRUGS (2)
  1. OCREVUS [Suspect]
     Active Substance: OCRELIZUMAB
     Indication: Relapsing-remitting multiple sclerosis
     Dosage: THEN 600 MG EVERY 6 MONTHS
     Route: 042
     Dates: start: 20200714
  2. MORPHINE [Concomitant]
     Active Substance: MORPHINE

REACTIONS (6)
  - Walking aid user [Not Recovered/Not Resolved]
  - Uterine infection [Recovered/Resolved]
  - Kidney infection [Unknown]
  - Urinary tract infection [Unknown]
  - Gastric infection [Unknown]
  - Appendicitis [Unknown]
